FAERS Safety Report 6069605-9 (Version None)
Quarter: 2009Q1

REPORT INFORMATION
  Report Type: 
  Country: None (occurrence: None)
  Receive Date: 20090209
  Receipt Date: 20090129
  Transmission Date: 20090719
  Serious: Yes (Other)
  Sender: FDA-Public Use
  Company Number: KR-RANBAXY-2009RR-20526

PATIENT
  Age: 66 Year
  Sex: Female

DRUGS (3)
  1. CEFAZOLIN [Suspect]
     Indication: INFECTION PROPHYLAXIS
     Dosage: 1 G, UNK
  2. CEFAZOLIN [Suspect]
     Dosage: 2 G, UNK
  3. IOHEXOL [Concomitant]
     Indication: INFECTION PROPHYLAXIS
     Dosage: 20 ML, UNK

REACTIONS (1)
  - STATUS EPILEPTICUS [None]
